FAERS Safety Report 25341660 (Version 1)
Quarter: 2025Q2

REPORT INFORMATION
  Report Type: Spontaneous
  Country: CN (occurrence: CN)
  Receive Date: 20250521
  Receipt Date: 20250521
  Transmission Date: 20250717
  Serious: Yes (Hospitalization)
  Sender: PFIZER
  Company Number: CN-PFIZER INC-PV202500059378

PATIENT
  Age: 49 Year
  Sex: Male
  Weight: 70 kg

DRUGS (1)
  1. TIGECYCLINE [Suspect]
     Active Substance: TIGECYCLINE
     Indication: Pneumonia
     Dosage: 50 MG, 2X/DAY
     Route: 041
     Dates: start: 20250509, end: 20250515

REACTIONS (3)
  - Prothrombin level increased [Unknown]
  - Activated partial thromboplastin time prolonged [Unknown]
  - Prothrombin time prolonged [Unknown]

NARRATIVE: CASE EVENT DATE: 20250515
